FAERS Safety Report 23341645 (Version 1)
Quarter: 2023Q4

REPORT INFORMATION
  Report Type: Spontaneous
  Country: US (occurrence: US)
  Receive Date: 20231227
  Receipt Date: 20231227
  Transmission Date: 20240110
  Serious: No
  Sender: FDA-Public Use
  Company Number: US-ELI_LILLY_AND_COMPANY-US202312013717

PATIENT
  Age: 65 Year
  Sex: Female

DRUGS (1)
  1. EMGALITY [Suspect]
     Active Substance: GALCANEZUMAB-GNLM
     Indication: Product used for unknown indication
     Dosage: 120 MG, UNKNOWN
     Route: 065

REACTIONS (7)
  - Dyspnoea [Unknown]
  - Chest pain [Unknown]
  - Back pain [Unknown]
  - Abdominal pain [Unknown]
  - Tremor [Unknown]
  - Hyperhidrosis [Unknown]
  - Asthenia [Unknown]

NARRATIVE: CASE EVENT DATE: 20231220
